FAERS Safety Report 25587558 (Version 1)
Quarter: 2025Q3

REPORT INFORMATION
  Report Type: Spontaneous
  Country: US (occurrence: US)
  Receive Date: 20250721
  Receipt Date: 20250721
  Transmission Date: 20251021
  Serious: No
  Sender: BLUEPRINT MEDICINES
  Company Number: US-Blueprint Medicines Corporation-2025-AER-01561

PATIENT
  Age: 71 Year
  Sex: Male

DRUGS (1)
  1. AYVAKIT [Suspect]
     Active Substance: AVAPRITINIB
     Indication: Haematopoietic neoplasm
     Route: 065
     Dates: start: 20240730

REACTIONS (5)
  - Haemoglobin decreased [Unknown]
  - Exercise tolerance decreased [Unknown]
  - Loss of personal independence in daily activities [Unknown]
  - Pain [Unknown]
  - Splenomegaly [Unknown]
